FAERS Safety Report 7782409 (Version 2)
Quarter: 2013Q1

REPORT INFORMATION
  Report Type: Spontaneous
  Country: US (occurrence: US)
  Receive Date: 20110129
  Receipt Date: 20130129
  Transmission Date: 20140127
  Serious: No
  Sender: FDA-Public Use
  Company Number: US-ABBOTT-10P-163-0624681-00

PATIENT
  Age: 69 None
  Sex: Female
  Weight: 56.75 kg

DRUGS (9)
  1. HUMIRA 40 MG/0.8 ML PEN [Suspect]
     Indication: RHEUMATOID ARTHRITIS
     Route: 058
     Dates: start: 2009, end: 2011
  2. HUMIRA 40 MG/0.8 ML PEN [Suspect]
     Dates: start: 2001
  3. HUMIRA 40 MG/0.8 ML PEN [Suspect]
     Dates: end: 201202
  4. PREDNISONE [Concomitant]
     Indication: RHEUMATOID ARTHRITIS
     Dosage: TAPER
     Route: 048
  5. METHOTREXATE [Concomitant]
     Indication: RHEUMATOID ARTHRITIS
  6. DICLOFENAC [Concomitant]
     Indication: RHEUMATOID ARTHRITIS
  7. FLUOXETINE [Concomitant]
     Indication: NERVOUSNESS
  8. FOLIC ACID [Concomitant]
     Indication: VITAMIN SUPPLEMENTATION
  9. VITAMINS [Concomitant]
     Indication: VITAMIN SUPPLEMENTATION

REACTIONS (13)
  - Rash erythematous [Recovering/Resolving]
  - Arthralgia [Not Recovered/Not Resolved]
  - Injection site pain [Not Recovered/Not Resolved]
  - Rash macular [Not Recovered/Not Resolved]
  - Rash [Recovered/Resolved]
  - Pain [Recovering/Resolving]
  - Cough [Not Recovered/Not Resolved]
  - Headache [Not Recovered/Not Resolved]
  - Pain [Recovering/Resolving]
  - Bronchitis [Not Recovered/Not Resolved]
  - Sinusitis [Not Recovered/Not Resolved]
  - Incorrect drug administration duration [Not Recovered/Not Resolved]
  - Fatigue [Not Recovered/Not Resolved]
